FAERS Safety Report 9458879 (Version 1)
Quarter: 2013Q3

REPORT INFORMATION
  Report Type: Spontaneous
  Country: GB (occurrence: GB)
  Receive Date: 20130814
  Receipt Date: 20130814
  Transmission Date: 20140515
  Serious: Yes (Other)
  Sender: FDA-Public Use
  Company Number: GB-BAXTER-2013BAX032365

PATIENT
  Sex: 0

DRUGS (3)
  1. IFOSFAMIDE INJECTION 2G [Suspect]
     Indication: SARCOMA
     Dosage: 1 G/M2/DAY
  2. MESNA TABLETS 600 MG [Suspect]
     Indication: HAEMATURIA
     Route: 048
  3. SODIUM BICARBONATE [Suspect]
     Indication: PH URINE ABNORMAL
     Route: 048

REACTIONS (1)
  - Bone marrow toxicity [Unknown]
